FAERS Safety Report 8896548 (Version 1)
Quarter: 2012Q4

REPORT INFORMATION
  Report Type: Spontaneous
  Country: US (occurrence: None)
  Receive Date: 20121107
  Receipt Date: 20121107
  Transmission Date: 20130627
  Serious: No
  Sender: FDA-Public Use
  Company Number: None

PATIENT
  Age: 82 Year
  Sex: Female
  Weight: 94.5 kg

DRUGS (2)
  1. ACETAMINOPHEN/OXYCODONE [Suspect]
     Indication: PAIN
     Route: 048
     Dates: start: 20121020, end: 20121023
  2. OXYCODONE [Suspect]
     Indication: PAIN
     Route: 048
     Dates: start: 20121012, end: 20121020

REACTIONS (8)
  - Delirium [None]
  - Lethargy [None]
  - Respiratory failure [None]
  - Hypercapnia [None]
  - Pulmonary oedema [None]
  - Sedation [None]
  - Hypoventilation [None]
  - Somnolence [None]
